FAERS Safety Report 24394327 (Version 1)
Quarter: 2024Q4

REPORT INFORMATION
  Report Type: Spontaneous
  Country: CA (occurrence: CA)
  Receive Date: 20241004
  Receipt Date: 20241004
  Transmission Date: 20250115
  Serious: Yes (Hospitalization)
  Sender: ACCORD
  Company Number: None

PATIENT
  Age: 88 Year
  Sex: Female
  Weight: 59 kg

DRUGS (17)
  1. APIXABAN [Suspect]
     Active Substance: APIXABAN
     Indication: Product used for unknown indication
     Dosage: 2 EVERY 1 DAYS
     Route: 048
  2. ASPIRIN [Concomitant]
     Active Substance: ASPIRIN
     Route: 065
  3. BISOPROLOL [Concomitant]
     Active Substance: BISOPROLOL\BISOPROLOL FUMARATE
     Route: 065
  4. CHOLECALCIFEROL [Concomitant]
     Active Substance: CHOLECALCIFEROL
  5. DESYREL [Concomitant]
     Active Substance: TRAZODONE HYDROCHLORIDE
  6. GLICLAZIDE [Concomitant]
     Active Substance: GLICLAZIDE
     Dosage: STRENGTH : 30 MG, EXTENDED RELEASE
  7. DILAUDID [Concomitant]
     Active Substance: HYDROMORPHONE HYDROCHLORIDE
  8. LIPITOR [Concomitant]
     Active Substance: ATORVASTATIN CALCIUM
     Route: 065
  9. MELATONIN [Concomitant]
     Active Substance: MELATONIN
  10. MINERALS\VITAMINS [Concomitant]
     Active Substance: MINERALS\VITAMINS
  11. NORVASC [Concomitant]
     Active Substance: AMLODIPINE BESYLATE
  12. PANTOPRAZOLE SODIUM [Concomitant]
     Active Substance: PANTOPRAZOLE SODIUM
     Dosage: ENTERIC COATED
  13. RISPERDAL [Concomitant]
     Active Substance: RISPERIDONE
     Dosage: STRENGTH : 0.5 MG
  14. SENOKOT [Concomitant]
     Active Substance: SENNOSIDES
     Dosage: STRENGTH : 8.6 MG
  15. LINAGLIPTIN [Concomitant]
     Active Substance: LINAGLIPTIN
  16. TYLENOL [Concomitant]
     Active Substance: ACETAMINOPHEN
  17. ZYLOPRIM [Concomitant]
     Active Substance: ALLOPURINOL
     Dosage: STRENGTH : 100

REACTIONS (2)
  - Haematuria [Recovered/Resolved]
  - Thrombosis [Recovered/Resolved]
